FAERS Safety Report 18783683 (Version 1)
Quarter: 2021Q1

REPORT INFORMATION
  Report Type: Report from Study
  Country: US (occurrence: US)
  Receive Date: 20210125
  Receipt Date: 20210125
  Transmission Date: 20210419
  Serious: Yes (Hospitalization)
  Sender: FDA-Public Use
  Company Number: US-BAYER-2021-035421

PATIENT
  Age: 43 Year
  Sex: Female
  Weight: 68.48 kg

DRUGS (2)
  1. ADEMPAS [Suspect]
     Active Substance: RIOCIGUAT
     Indication: PULMONARY ARTERIAL HYPERTENSION
     Dosage: UNK
  2. ADEMPAS [Suspect]
     Active Substance: RIOCIGUAT
     Indication: PULMONARY ARTERIAL HYPERTENSION
     Dosage: 2.5 MG, TID
     Route: 048
     Dates: start: 20201223

REACTIONS (6)
  - Cardiac disorder [None]
  - Liver disorder [None]
  - Oxygen therapy [None]
  - Hypotension [None]
  - Ovarian cyst [None]
  - Thrombosis [None]

NARRATIVE: CASE EVENT DATE: 202011
